FAERS Safety Report 7916255 (Version 3)
Quarter: 2014Q2

REPORT INFORMATION
  Report Type: Spontaneous
  Country: US (occurrence: US)
  Receive Date: 20110427
  Receipt Date: 20140408
  Transmission Date: 20141212
  Serious: Yes (Hospitalization)
  Sender: FDA-Public Use
  Company Number: US-BAYER-2011-035154

PATIENT
  Age: 20 Year
  Sex: Female
  Weight: 63.49 kg

DRUGS (6)
  1. YAZ [Suspect]
     Indication: CONTRACEPTION
     Dosage: UNK
     Route: 048
     Dates: start: 20080702, end: 20090215
  2. LEVAQUIN [Concomitant]
     Dosage: UNK
     Dates: start: 20090310
  3. LEVAQUIN [Concomitant]
     Dosage: UNK
     Route: 048
     Dates: start: 20090314
  4. GENTAMYCIN [Concomitant]
     Dosage: UNK
     Dates: start: 20090310
  5. TYLENOL [PARACETAMOL] [Concomitant]
     Dosage: UNK
     Route: 048
     Dates: start: 20090310
  6. VICODIN [Concomitant]
     Dosage: UNK
     Route: 048
     Dates: start: 20090314

REACTIONS (3)
  - Gallbladder disorder [None]
  - Cholecystitis chronic [None]
  - Injury [None]
